FAERS Safety Report 6469054-5 (Version None)
Quarter: 2009Q4

REPORT INFORMATION
  Report Type: 
  Country: None (occurrence: None)
  Receive Date: 20091201
  Receipt Date: 20091119
  Transmission Date: 20100525
  Serious: Yes (Hospitalization)
  Sender: FDA-Public Use
  Company Number: 20097685

PATIENT

DRUGS (1)
  1. LIORESAL [Suspect]
     Indication: MUSCLE SPASTICITY
     Dosage: 750 - 600 MCG, DAILY, INTRATHECAL
     Route: 037

REACTIONS (9)
  - ABDOMINAL MASS [None]
  - DEVICE FAILURE [None]
  - DIARRHOEA HAEMORRHAGIC [None]
  - HYPOTONIA [None]
  - LOSS OF CONSCIOUSNESS [None]
  - MEDICAL DEVICE COMPLICATION [None]
  - OVERDOSE [None]
  - PELVIC MASS [None]
  - URINARY TRACT INFECTION [None]
